FAERS Safety Report 13589068 (Version 1)
Quarter: 2017Q2

REPORT INFORMATION
  Report Type: Spontaneous
  Country: US (occurrence: US)
  Receive Date: 20170526
  Receipt Date: 20170526
  Transmission Date: 20170830
  Serious: Yes (Other)
  Sender: FDA-Public Use
  Company Number: None

PATIENT
  Age: 96 Year
  Sex: Female
  Weight: 60.75 kg

DRUGS (7)
  1. LISINOPRIL. [Concomitant]
     Active Substance: LISINOPRIL
  2. DOCSUATE SODIUM [Concomitant]
  3. PREDNISONE 40MG ONCE A DAY [Suspect]
     Active Substance: PREDNISONE
     Indication: BREATH SOUNDS ABNORMAL
     Dosage: ?          QUANTITY:1 TABLET(S);?
     Route: 048
  4. ASA [Concomitant]
     Active Substance: ASPIRIN
  5. DULCOLAX SUPP. [Concomitant]
  6. VTAMIN D3 [Concomitant]
  7. CIPRO [Suspect]
     Active Substance: CIPROFLOXACIN HYDROCHLORIDE
     Indication: URINARY TRACT INFECTION
     Dosage: ?          QUANTITY:1 TABLET(S);?
     Route: 048

REACTIONS (5)
  - Delirium [None]
  - Urinary tract infection [None]
  - Morganella infection [None]
  - Confusional state [None]
  - Psychotic disorder [None]

NARRATIVE: CASE EVENT DATE: 20170501
